FAERS Safety Report 24185033 (Version 1)
Quarter: 2024Q3

REPORT INFORMATION
  Report Type: Spontaneous
  Country: US (occurrence: None)
  Receive Date: 20240807
  Receipt Date: 20240807
  Transmission Date: 20241017
  Serious: Yes (Other)
  Sender: Public
  Company Number: None

PATIENT
  Age: 42 Year
  Sex: Male

DRUGS (1)
  1. ZUBSOLV [Suspect]
     Active Substance: BUPRENORPHINE HYDROCHLORIDE\NALOXONE HYDROCHLORIDE
     Dosage: FREQUENCY : DAILY;?
     Route: 060
     Dates: start: 20230801

REACTIONS (5)
  - Withdrawal syndrome [None]
  - Restless legs syndrome [None]
  - Insomnia [None]
  - Nasopharyngitis [None]
  - Chills [None]

NARRATIVE: CASE EVENT DATE: 20240730
